FAERS Safety Report 15321421 (Version 3)
Quarter: 2018Q3

REPORT INFORMATION
  Report Type: Spontaneous
  Country: US (occurrence: US)
  Receive Date: 20180827
  Receipt Date: 20180906
  Transmission Date: 20181010
  Serious: Yes (Hospitalization)
  Sender: FDA-Public Use
  Company Number: US-RADIUS HEALTH INC.-2018US001924

PATIENT
  Sex: Female
  Weight: 50.34 kg

DRUGS (1)
  1. TYMLOS [Suspect]
     Active Substance: ABALOPARATIDE
     Indication: OSTEOPOROSIS POSTMENOPAUSAL
     Dosage: 80 MCG, DIALY
     Route: 058
     Dates: start: 201807

REACTIONS (3)
  - Myalgia [Unknown]
  - Seizure [Unknown]
  - Asthenia [Unknown]
